FAERS Safety Report 10944419 (Version 2)
Quarter: 2015Q2

REPORT INFORMATION
  Report Type: Report from Study
  Country: US (occurrence: US)
  Receive Date: 20150323
  Receipt Date: 20150427
  Transmission Date: 20150821
  Serious: Yes (Hospitalization, Other)
  Sender: FDA-Public Use
  Company Number: US-AMGEN-USASL2015025928

PATIENT
  Age: 50 Year
  Sex: Male
  Weight: 102.4 kg

DRUGS (4)
  1. PREDNISONE. [Suspect]
     Active Substance: PREDNISONE
     Dosage: 25 MG, QOD
     Route: 065
  2. PREDNISONE. [Suspect]
     Active Substance: PREDNISONE
     Indication: RHEUMATOID ARTHRITIS
     Dosage: 5 MG, QOD
     Route: 065
  3. ENBREL [Suspect]
     Active Substance: ETANERCEPT
     Indication: RHEUMATOID ARTHRITIS
     Dosage: 50 MG, QWK
     Route: 065
     Dates: start: 20131010
  4. METHOTREXATE [Suspect]
     Active Substance: METHOTREXATE
     Indication: RHEUMATOID ARTHRITIS
     Dosage: UNK UNK, QWK
     Route: 065

REACTIONS (16)
  - Pericardial effusion [Unknown]
  - Loss of consciousness [Recovered/Resolved]
  - Left ventricular failure [Recovered/Resolved]
  - Pain in extremity [Not Recovered/Not Resolved]
  - Swelling [Unknown]
  - Right ventricular failure [Recovered/Resolved]
  - Heart rate decreased [Unknown]
  - Peptic ulcer [Recovered/Resolved]
  - Haemorrhage [Recovered/Resolved]
  - Postoperative abscess [Recovered/Resolved]
  - Pericarditis constrictive [Recovered/Resolved]
  - Pericarditis [Recovered/Resolved]
  - Arthralgia [Not Recovered/Not Resolved]
  - Duodenal ulcer [Recovered/Resolved]
  - Asthenia [Unknown]
  - Sepsis [Recovered/Resolved]

NARRATIVE: CASE EVENT DATE: 2014
